FAERS Safety Report 9306587 (Version 1)
Quarter: 2013Q2

REPORT INFORMATION
  Report Type: Spontaneous
  Country: US (occurrence: US)
  Receive Date: 20130523
  Receipt Date: 20130523
  Transmission Date: 20140414
  Serious: No
  Sender: FDA-Public Use
  Company Number: US-FOUGERA-2013FO000045

PATIENT
  Sex: Female

DRUGS (1)
  1. ZONALON (PRUDOXIN CREAM) [Suspect]
     Indication: MUSCULOSKELETAL DISCOMFORT
     Route: 061
     Dates: start: 2013

REACTIONS (4)
  - Arthralgia [Unknown]
  - Back pain [Unknown]
  - Groin pain [Unknown]
  - Inappropriate schedule of drug administration [Unknown]
